FAERS Safety Report 8790298 (Version 1)
Quarter: 2012Q4

REPORT INFORMATION
  Report Type: 
  Country: NL (occurrence: NL)
  Receive Date: 20120917
  Receipt Date: 20120917
  Transmission Date: 20130627
  Serious: Yes (Hospitalization)
  Sender: FDA-Public Use
  Company Number: NL-MYLANLABS-2012S1018456

PATIENT
  Age: 62 Year
  Sex: Male

DRUGS (9)
  1. FUROSEMIDE [Suspect]
     Indication: OEDEMA PERIPHERAL
     Dosage: 40mg/day
     Route: 048
  2. FUROSEMIDE [Suspect]
     Indication: DRUG ABUSE
     Dosage: 40mg/day
     Route: 048
  3. FUROSEMIDE [Suspect]
     Indication: OEDEMA PERIPHERAL
     Dosage: several tablets per day
     Route: 048
  4. FUROSEMIDE [Suspect]
     Indication: DRUG ABUSE
     Dosage: several tablets per day
     Route: 048
  5. PERINDOPRIL [Suspect]
     Indication: HYPERTENSION
     Dosage: 4mg/day
     Route: 065
  6. FLUTICASONE PROPIONATE [Concomitant]
  7. TIOTROPIUM BROMIDE [Concomitant]
  8. SALMETEROL [Concomitant]
  9. SPIRONOLACTONE [Concomitant]
     Indication: HYPERTENSION
     Dosage: 50mg/day
     Route: 065

REACTIONS (7)
  - Metabolic alkalosis [Recovering/Resolving]
  - Hypochloraemia [Recovered/Resolved]
  - Hypokalaemia [Recovered/Resolved]
  - Chronic obstructive pulmonary disease [Unknown]
  - Oedema [Unknown]
  - Drug abuse [Unknown]
  - Ventricular tachycardia [Recovered/Resolved]
